FAERS Safety Report 14813003 (Version 2)
Quarter: 2018Q3

REPORT INFORMATION
  Report Type: Spontaneous
  Country: US (occurrence: US)
  Receive Date: 20180426
  Receipt Date: 20180801
  Transmission Date: 20181010
  Serious: Yes (Hospitalization)
  Sender: FDA-Public Use
  Company Number: US-VIFOR (INTERNATIONAL) INC.-VIT-2016-03303

PATIENT
  Age: 79 Year
  Sex: Male

DRUGS (20)
  1. VELTASSA [Suspect]
     Active Substance: PATIROMER
  2. PERCOCET [Concomitant]
     Active Substance: ACETAMINOPHEN\OXYCODONE HYDROCHLORIDE
  3. LYRICA [Concomitant]
     Active Substance: PREGABALIN
  4. SODIUM BICARBONATE. [Concomitant]
     Active Substance: SODIUM BICARBONATE
  5. TOPIRAMATE. [Concomitant]
     Active Substance: TOPIRAMATE
  6. PRESERVISION [Concomitant]
     Active Substance: MINERALS\VITAMINS
  7. VELTASSA [Suspect]
     Active Substance: PATIROMER
  8. OMEPRAZOLE. [Concomitant]
     Active Substance: OMEPRAZOLE
  9. OXYCODONE/APAP [Concomitant]
     Active Substance: ACETAMINOPHEN\OXYCODONE HYDROCHLORIDE
  10. VELTASSA [Suspect]
     Active Substance: PATIROMER
     Indication: HYPERKALAEMIA
     Route: 048
     Dates: start: 20160324
  11. ADVAIR HFA [Concomitant]
     Active Substance: FLUTICASONE PROPIONATE\SALMETEROL XINAFOATE
  12. LORAZEPAM. [Concomitant]
     Active Substance: LORAZEPAM
  13. SODIUM POLYSTYRENE SULFONATE. [Concomitant]
     Active Substance: SODIUM POLYSTYRENE SULFONATE
  14. AMLODIPINE [Concomitant]
     Active Substance: AMLODIPINE BESYLATE
  15. CALCITRIOL. [Concomitant]
     Active Substance: CALCITRIOL
  16. LEXAPRO [Concomitant]
     Active Substance: ESCITALOPRAM OXALATE
  17. LORAZEPAM. [Concomitant]
     Active Substance: LORAZEPAM
  18. ALFUZOSIN [Concomitant]
     Active Substance: ALFUZOSIN
  19. LISINOPRIL. [Concomitant]
     Active Substance: LISINOPRIL
  20. OTEZLA [Concomitant]
     Active Substance: APREMILAST

REACTIONS (5)
  - Headache [Recovered/Resolved]
  - Neck surgery [Not Recovered/Not Resolved]
  - Drug dose omission [Not Recovered/Not Resolved]
  - Neck pain [Recovered/Resolved]
  - Off label use [Unknown]

NARRATIVE: CASE EVENT DATE: 201604
